FAERS Safety Report 8479875-5 (Version None)
Quarter: 2012Q2

REPORT INFORMATION
  Report Type: 
  Country: None (occurrence: None)
  Receive Date: 20120629
  Receipt Date: 20120618
  Transmission Date: 20120825
  Serious: Yes (Disabling)
  Sender: FDA-Public Use
  Company Number: NG-MYLANLABS-2012S1012359

PATIENT
  Age: 51 Year

DRUGS (1)
  1. NAPROXEN [Suspect]
     Indication: PAIN IN EXTREMITY
     Route: 065

REACTIONS (4)
  - FLANK PAIN [None]
  - PAIN IN EXTREMITY [None]
  - GASTRIC ULCER [None]
  - DYSPEPSIA [None]
